FAERS Safety Report 4868140-0 (Version None)
Quarter: 2005Q4

REPORT INFORMATION
  Report Type: 
  Country: None (occurrence: None)
  Receive Date: 20051229
  Receipt Date: 20051205
  Transmission Date: 20060501
  Serious: Yes (Hospitalization, Other)
  Sender: FDA-Public Use
  Company Number: PHEH2005US13207

PATIENT
  Age: 77 Year
  Sex: Male
  Weight: 87.981 kg

DRUGS (19)
  1. ZOMETA [Suspect]
     Indication: PROSTATE CANCER METASTATIC
     Dosage: 4.0 Q3MO
     Route: 042
     Dates: start: 20020101
  2. TAXOTERE [Concomitant]
     Dosage: 160 UNK
  3. ARANESP [Concomitant]
     Dosage: 100 UNK
  4. KYTRIL [Concomitant]
     Dosage: 1 UNK
  5. BENADRYL ^WARNER-LAMBERT^ /USA/ [Concomitant]
     Dosage: 50 UNK
  6. ZANTAC [Concomitant]
     Dosage: 50 UNK
  7. NEULASTA [Concomitant]
     Dosage: 6.0 UNK
  8. LUPRON [Concomitant]
     Dosage: 22.5 UNK
  9. AMIFOSTINE [Concomitant]
     Dosage: 500 UNK
  10. DECADRON /NET/ [Concomitant]
     Dosage: 20 UNK
  11. NOVANTRONE ^LEDERLE^ [Concomitant]
  12. DURAGESIC-100 [Concomitant]
     Dates: start: 20050706, end: 20050720
  13. ALOXI [Concomitant]
     Dosage: 0.25 UNK
  14. PERCOCET [Concomitant]
  15. MEGACE [Concomitant]
     Dates: start: 20050824, end: 20050907
  16. PRILOSEC [Concomitant]
  17. NEXIUM [Concomitant]
  18. CASODEX [Concomitant]
     Dates: start: 20040505, end: 20040728
  19. SAMARIUM [153 SM] LEXIDRONAM PENTASODIUM [Concomitant]
     Dates: start: 20040324

REACTIONS (33)
  - ABDOMINAL PAIN [None]
  - ANAEMIA [None]
  - ANOREXIA [None]
  - APHTHOUS STOMATITIS [None]
  - ARTHRALGIA [None]
  - ASTHENIA [None]
  - BONE DISORDER [None]
  - BONE PAIN [None]
  - DENTAL TREATMENT [None]
  - DIZZINESS [None]
  - DYSPNOEA EXERTIONAL [None]
  - FACIAL PAIN [None]
  - FATIGUE [None]
  - FISTULA [None]
  - HAEMATOCRIT DECREASED [None]
  - HAEMOGLOBIN DECREASED [None]
  - HYPOAESTHESIA [None]
  - IMPAIRED HEALING [None]
  - LOSS OF CONTROL OF LEGS [None]
  - MALAISE [None]
  - MYALGIA [None]
  - NAUSEA [None]
  - ORAL PAIN [None]
  - PAIN [None]
  - PAIN IN JAW [None]
  - PLATELET COUNT DECREASED [None]
  - RED BLOOD CELL COUNT DECREASED [None]
  - SENSORY LOSS [None]
  - SLEEP DISORDER [None]
  - STOMACH DISCOMFORT [None]
  - TOOTH DISORDER [None]
  - TOOTH EXTRACTION [None]
  - WHITE BLOOD CELL COUNT DECREASED [None]
